APPROVED DRUG PRODUCT: ACETIC ACID 0.25% IN PLASTIC CONTAINER
Active Ingredient: ACETIC ACID, GLACIAL
Strength: 250MG/100ML
Dosage Form/Route: SOLUTION;IRRIGATION, URETHRAL
Application: N018523 | Product #001 | TE Code: AT
Applicant: BAXTER HEALTHCARE CORP
Approved: Feb 19, 1982 | RLD: No | RS: No | Type: RX